FAERS Safety Report 4926417-4 (Version None)
Quarter: 2006Q1

REPORT INFORMATION
  Report Type: 
  Country: None (occurrence: None)
  Receive Date: 20060228
  Receipt Date: 20051116
  Transmission Date: 20060701
  Serious: No
  Sender: FDA-Public Use
  Company Number: US-GLAXOSMITHKLINE-A0582588A

PATIENT
  Age: 19 Year
  Sex: Male

DRUGS (5)
  1. LAMICTAL [Suspect]
     Indication: BIPOLAR DISORDER
     Dosage: 200MG PER DAY
     Route: 048
  2. ADDERALL 10 [Concomitant]
  3. AMBIEN [Concomitant]
  4. GEODON [Concomitant]
  5. WELLBUTRIN XL [Concomitant]

REACTIONS (3)
  - ERYTHEMA [None]
  - PERIPHERAL COLDNESS [None]
  - TEMPERATURE INTOLERANCE [None]
